FAERS Safety Report 12788224 (Version 1)
Quarter: 2016Q3

REPORT INFORMATION
  Report Type: Spontaneous
  Country: US (occurrence: US)
  Receive Date: 20160928
  Receipt Date: 20160928
  Transmission Date: 20161109
  Serious: No
  Sender: FDA-Public Use
  Company Number: US-BIOGEN-2014BI005706

PATIENT
  Age: 40 Year
  Sex: Female

DRUGS (2)
  1. TECFIDERA [Suspect]
     Active Substance: DIMETHYL FUMARATE
     Indication: MULTIPLE SCLEROSIS
     Route: 048
     Dates: start: 20131008, end: 20140110
  2. TECFIDERA [Suspect]
     Active Substance: DIMETHYL FUMARATE
     Route: 065
     Dates: start: 2013, end: 20160504

REACTIONS (17)
  - Musculoskeletal pain [Unknown]
  - Multiple sclerosis [Not Recovered/Not Resolved]
  - Off label use [Recovered/Resolved]
  - Musculoskeletal disorder [Not Recovered/Not Resolved]
  - Confusional state [Recovered/Resolved]
  - Pruritus [Recovered/Resolved]
  - Abdominal pain upper [Unknown]
  - Photopsia [Not Recovered/Not Resolved]
  - Anxiety [Not Recovered/Not Resolved]
  - Visual impairment [Not Recovered/Not Resolved]
  - Hot flush [Recovered/Resolved]
  - Dizziness [Recovered/Resolved]
  - Central nervous system lesion [Not Recovered/Not Resolved]
  - Panic attack [Recovered/Resolved]
  - Fibromyalgia [Not Recovered/Not Resolved]
  - Optic neuritis [Not Recovered/Not Resolved]
  - Malaise [Not Recovered/Not Resolved]

NARRATIVE: CASE EVENT DATE: 20140110
